FAERS Safety Report 4732539-3 (Version None)
Quarter: 2005Q3

REPORT INFORMATION
  Report Type: 
  Country: None (occurrence: None)
  Receive Date: 20050803
  Receipt Date: 20050725
  Transmission Date: 20060218
  Serious: Yes (Other)
  Sender: FDA-Public Use
  Company Number: GB-GLAXOSMITHKLINE-B0388699A

PATIENT
  Age: 73 Year
  Sex: Male

DRUGS (6)
  1. AVODART [Suspect]
     Indication: PROSTATISM
     Route: 048
     Dates: start: 20050601
  2. WARFARIN SODIUM [Concomitant]
     Indication: ANTICOAGULANT THERAPY
     Dosage: 3MG PER DAY
     Route: 065
  3. ATORVASTATIN CALCIUM [Concomitant]
     Indication: BLOOD CHOLESTEROL INCREASED
     Dosage: 20MG PER DAY
     Route: 065
  4. RAMIPRIL [Concomitant]
     Indication: BLOOD PRESSURE INCREASED
     Dosage: 5MG PER DAY
     Route: 065
  5. INDORAMIN [Concomitant]
     Indication: PROSTATISM
     Dosage: 20MG PER DAY
     Route: 065
  6. HERBAL MEDICATION [Concomitant]
     Route: 048

REACTIONS (4)
  - ABDOMINAL PAIN UPPER [None]
  - CONSTIPATION [None]
  - HAEMATOCHEZIA [None]
  - HAEMORRHOIDAL HAEMORRHAGE [None]
